FAERS Safety Report 17886642 (Version 1)
Quarter: 2020Q2

REPORT INFORMATION
  Report Type: Spontaneous
  Country: IN (occurrence: IN)
  Receive Date: 20200611
  Receipt Date: 20200611
  Transmission Date: 20200714
  Serious: Yes (Other)
  Sender: FDA-Public Use
  Company Number: NVSC2020IN160488

PATIENT
  Age: 40 Year
  Sex: Female

DRUGS (1)
  1. DICLOFENAC [Suspect]
     Active Substance: DICLOFENAC
     Indication: PAIN
     Dosage: UNK
     Route: 065

REACTIONS (6)
  - Intestinal stenosis [Recovered/Resolved]
  - Occult blood positive [Recovered/Resolved]
  - Intestinal intraepithelial lymphocytes increased [Recovered/Resolved]
  - Abdominal pain [Recovered/Resolved]
  - Functional gastrointestinal disorder [Recovered/Resolved]
  - Anaemia [Recovered/Resolved]
